FAERS Safety Report 6123624-2 (Version None)
Quarter: 2009Q1

REPORT INFORMATION
  Report Type: 
  Country: None (occurrence: None)
  Receive Date: 20090319
  Receipt Date: 20090313
  Transmission Date: 20090719
  Serious: Yes (Other)
  Sender: FDA-Public Use
  Company Number: US-ASTRAZENECA-2009UW06618

PATIENT
  Age: 67 Year
  Sex: Male

DRUGS (3)
  1. CRESTOR [Suspect]
     Route: 048
  2. DIOVAN [Concomitant]
  3. GLIPIZIDE [Concomitant]

REACTIONS (2)
  - DERMATOMYOSITIS [None]
  - PHOTOSENSITIVITY REACTION [None]
